FAERS Safety Report 25594182 (Version 3)
Quarter: 2025Q4

REPORT INFORMATION
  Report Type: Spontaneous
  Country: JP (occurrence: JP)
  Receive Date: 20250723
  Receipt Date: 20251118
  Transmission Date: 20260118
  Serious: Yes (Hospitalization, Other)
  Sender: ROCHE
  Company Number: JP-CHUGAI-2025022856

PATIENT
  Age: 77 Year
  Sex: Male
  Weight: 67.8 kg

DRUGS (13)
  1. TECENTRIQ [Suspect]
     Active Substance: ATEZOLIZUMAB
     Indication: Hepatocellular carcinoma
     Dosage: 1200 MILLIGRAM
     Route: 042
     Dates: start: 20250204, end: 20250512
  2. AVASTIN [Suspect]
     Active Substance: BEVACIZUMAB
     Indication: Hepatocellular carcinoma
     Dosage: 1033.5 MILLIGRAM
     Route: 042
     Dates: start: 20250204, end: 20250512
  3. LIVACT [ISOLEUCINE;LEUCINE;VALINE] [Concomitant]
     Dosage: 4.15 GRAM, TID
     Route: 050
     Dates: start: 20240612
  4. URSODIOL [Concomitant]
     Active Substance: URSODIOL
     Dosage: 200 MILLIGRAM, TID
     Route: 050
     Dates: start: 20240621
  5. RABEPRAZOLE SODIUM [Concomitant]
     Active Substance: RABEPRAZOLE SODIUM
     Dosage: 10 MILLIGRAM, QD
     Route: 050
     Dates: start: 20240927
  6. FEXOFENADINE HYDROCHLORIDE [Concomitant]
     Active Substance: FEXOFENADINE HYDROCHLORIDE
     Dosage: 60 MILLIGRAM, BID
     Route: 050
     Dates: start: 20240701
  7. MYSER [DIFLUPREDNATE] [Concomitant]
     Dosage: UNK, BID
     Route: 061
     Dates: start: 20240704
  8. INSULIN GLARGINE BS [INSULIN GLARGINE BIOSIMILAR 2] [Concomitant]
     Dosage: 10 INTERNATIONAL UNIT, QD
     Route: 050
  9. INSULIN GLARGINE BS [INSULIN GLARGINE BIOSIMILAR 2] [Concomitant]
     Dosage: 10 INTERNATIONAL UNIT, QD
     Route: 050
  10. HUMALOG [Concomitant]
     Active Substance: INSULIN LISPRO
     Dosage: 3 INTERNATIONAL UNIT, QD
     Route: 050
     Dates: start: 20241009
  11. METFORMIN HYDROCHLORIDE [Concomitant]
     Active Substance: METFORMIN HYDROCHLORIDE
     Dosage: 500 MILLIGRAM, QD
     Route: 050
     Dates: start: 20241010
  12. JARDIANCE [Concomitant]
     Active Substance: EMPAGLIFLOZIN
     Dosage: 10 MILLIGRAM, QD
     Route: 050
     Dates: start: 20241007
  13. LENVATINIB MESYLATE [Concomitant]
     Active Substance: LENVATINIB MESYLATE
     Dosage: 8 MILLIGRAM
     Route: 065

REACTIONS (2)
  - Myocarditis [Recovering/Resolving]
  - Atrial fibrillation [Unknown]

NARRATIVE: CASE EVENT DATE: 20250514
